FAERS Safety Report 17001742 (Version 1)
Quarter: 2019Q4

REPORT INFORMATION
  Report Type: Spontaneous
  Country: NL (occurrence: NL)
  Receive Date: 20191106
  Receipt Date: 20191106
  Transmission Date: 20200122
  Serious: Yes (Life-Threatening, Hospitalization)
  Sender: FDA-Public Use
  Company Number: NL-TEVA-2019-NL-1131246

PATIENT
  Age: 88 Year
  Sex: Female
  Weight: 55 kg

DRUGS (6)
  1. LISINOPRIL TABLET, 5 MG (MILLIGRAM) [Suspect]
     Active Substance: LISINOPRIL
     Dosage: 1X PER DAY 1 PIECE , 5 MG 1 DAYS
     Dates: start: 2014, end: 20190909
  2. CALCI CHEW D3 500MG/800IE [Concomitant]
  3. METOPROLOL RET 1DD100MG [Concomitant]
     Dosage: 1DD100MG , 100 MG 1 DAYS
  4. CLOPIDOGREL [Suspect]
     Active Substance: CLOPIDOGREL BISULFATE
     Indication: ANGIOPLASTY
     Dosage: 1X PER DAY , 1 DOSAGE FORMS 1 DAYS
     Dates: start: 20190903, end: 20190909
  5. THYRAX [Concomitant]
     Active Substance: LEVOTHYROXINE
     Dosage: 1DD75MCG , 75 MICROGRAM 1 DAYS
  6. CLOPIDOGREL [Suspect]
     Active Substance: CLOPIDOGREL BISULFATE
     Indication: PERIPHERAL VASCULAR DISORDER

REACTIONS (2)
  - Tongue oedema [Recovered/Resolved]
  - Respiratory distress [Recovered/Resolved]

NARRATIVE: CASE EVENT DATE: 20190908
